FAERS Safety Report 22167443 (Version 4)
Quarter: 2023Q2

REPORT INFORMATION
  Report Type: Spontaneous
  Country: FR (occurrence: FR)
  Receive Date: 20230403
  Receipt Date: 20230522
  Transmission Date: 20230722
  Serious: Yes (Hospitalization, Other)
  Sender: FDA-Public Use
  Company Number: None

PATIENT
  Age: 55 Year
  Sex: Male

DRUGS (22)
  1. DOXORUBICIN [Suspect]
     Active Substance: DOXORUBICIN
     Indication: Diffuse large B-cell lymphoma
     Dosage: 1 CURE
     Route: 065
     Dates: start: 20221227
  2. CYCLOPHOSPHAMIDE [Suspect]
     Active Substance: CYCLOPHOSPHAMIDE
     Indication: Diffuse large B-cell lymphoma
     Dosage: 1 CURE
     Route: 065
     Dates: start: 20221227
  3. NALOXEGOL OXALATE [Suspect]
     Active Substance: NALOXEGOL OXALATE
     Indication: Constipation
     Dosage: AS NEEDED
     Route: 048
     Dates: start: 20230211
  4. CILASTATIN SODIUM\IMIPENEM [Suspect]
     Active Substance: CILASTATIN SODIUM\IMIPENEM
     Indication: Bacterial infection
     Dosage: STRENGTH: 500 MG/500 MG, 1 INJECTION (800 MG) DAILY
     Route: 042
     Dates: start: 20230114, end: 20230208
  5. BACTRIM [Suspect]
     Active Substance: SULFAMETHOXAZOLE\TRIMETHOPRIM
     Indication: Bacterial infection
     Dosage: 1 {DF}, 1 CP IN THE MORNING (400 MG)
     Route: 048
     Dates: start: 20230106, end: 20230303
  6. LOVENOX [Suspect]
     Active Substance: ENOXAPARIN SODIUM
     Indication: Prophylaxis
     Dosage: 4000 [IU]
     Route: 058
     Dates: start: 20230210
  7. MORPHINE SULFATE [Suspect]
     Active Substance: MORPHINE SULFATE
     Indication: Pain
     Dosage: 1 SCOOP SKENAN LP30MG EVERY 12H
     Route: 048
     Dates: start: 20230210, end: 20230218
  8. CASPOFUNGIN ACETATE [Suspect]
     Active Substance: CASPOFUNGIN ACETATE
     Indication: Fungal infection
     Dosage: 70 MG
     Route: 042
     Dates: start: 20230126
  9. RITUXIMAB [Suspect]
     Active Substance: RITUXIMAB
     Indication: Diffuse large B-cell lymphoma
     Dosage: 1 CURE
     Route: 065
     Dates: start: 20221227
  10. ACETAMINOPHEN [Suspect]
     Active Substance: ACETAMINOPHEN
     Indication: Pain
     Dosage: 1 TABLET EVERY 6 HOURS, MAXIMUM 3 TABLETS DAILY
     Route: 048
     Dates: start: 20230211
  11. CIPROFLOXACIN [Suspect]
     Active Substance: CIPROFLOXACIN
     Indication: Bacterial infection
     Dosage: UNK
     Route: 065
     Dates: start: 20230203, end: 20230208
  12. VINCRISTINE SULFATE [Suspect]
     Active Substance: VINCRISTINE SULFATE
     Indication: Diffuse large B-cell lymphoma
     Dosage: 1 CURE
     Route: 065
     Dates: start: 20221227
  13. VALACYCLOVIR HYDROCHLORIDE [Suspect]
     Active Substance: VALACYCLOVIR HYDROCHLORIDE
     Indication: Bacterial infection
     Dosage: 1000 MG, 500 MG EVERY MORNING AND EVENING
     Route: 048
     Dates: start: 20230106
  14. AMITRIPTYLINE HYDROCHLORIDE [Suspect]
     Active Substance: AMITRIPTYLINE HYDROCHLORIDE
     Indication: Pain
     Dosage: 35 [DRP], 5 DROPS EVERY MORNING AND 10 DROPS EVERY MIDDAY AND EVENING
     Route: 048
     Dates: start: 20221210
  15. LEUCOVORIN CALCIUM [Suspect]
     Active Substance: LEUCOVORIN CALCIUM
     Indication: Prophylaxis
     Dosage: ONE TABLET EVERY MONDAY AND THURSDAY
     Route: 048
     Dates: start: 20230102
  16. DAPTOMYCIN [Suspect]
     Active Substance: DAPTOMYCIN
     Indication: Bacterial infection
     Dosage: 1 G
     Route: 042
     Dates: start: 20230211, end: 20230306
  17. ACUPAN [Suspect]
     Active Substance: NEFOPAM HYDROCHLORIDE
     Indication: Pain
     Dosage: ONE AMPOULE EVERY 4 HOURS IN CASE OF PAIN
     Route: 048
     Dates: start: 20230106, end: 20230302
  18. ARANESP [Suspect]
     Active Substance: DARBEPOETIN ALFA
     Indication: Anaemia
     Dosage: 1 DF, EVERY WEEK, 1 ADMINISTRATION WEEKLY
     Route: 058
     Dates: start: 20230213
  19. CEFTRIAXONE [Suspect]
     Active Substance: CEFTRIAXONE
     Indication: Bacterial infection
     Dosage: 2 G, BASE, 1 G EVERY MORNING AND EVENING
     Route: 048
     Dates: start: 20230209
  20. PANTOPRAZOLE [Suspect]
     Active Substance: PANTOPRAZOLE
     Indication: Gastritis prophylaxis
     Dosage: 20 MG
     Route: 048
     Dates: start: 20230106
  21. ALPRAZOLAM [Suspect]
     Active Substance: ALPRAZOLAM
     Indication: Anxiety
     Dosage: 1 TABLET (0.25 MG) IN CASE OF ANXIET
     Route: 048
     Dates: start: 20230106, end: 20230209
  22. METRONIDAZOLE [Suspect]
     Active Substance: METRONIDAZOLE
     Indication: Bacterial infection
     Dosage: 1500 MG, 500 MG EVERY MORNING, MIDDAY AND EVENING
     Route: 048
     Dates: start: 20230209, end: 20230303

REACTIONS (1)
  - Agranulocytosis [Recovered/Resolved]
